FAERS Safety Report 10622710 (Version 1)
Quarter: 2014Q4

REPORT INFORMATION
  Report Type: Spontaneous
  Country: US (occurrence: None)
  Receive Date: 20141202
  Receipt Date: 20141202
  Transmission Date: 20150529
  Serious: Yes (Disabling)
  Sender: FDA-Public Use
  Company Number: None

PATIENT
  Age: 24 Year
  Sex: Male
  Weight: 49.9 kg

DRUGS (2)
  1. GINKGO BILOBA [Suspect]
     Active Substance: GINKGO
     Indication: MEMORY IMPAIRMENT
     Dosage: 1 CAPSULE
     Route: 048
  2. METHYLPHENIDATE ER [Suspect]
     Active Substance: METHYLPHENIDATE
     Indication: ATTENTION DEFICIT/HYPERACTIVITY DISORDER
     Dosage: 1 TAB
     Route: 048
     Dates: start: 20140415, end: 20140430

REACTIONS (2)
  - Pupils unequal [None]
  - Holmes-Adie pupil [None]

NARRATIVE: CASE EVENT DATE: 20140430
